FAERS Safety Report 14436135 (Version 1)
Quarter: 2018Q1

REPORT INFORMATION
  Report Type: Spontaneous
  Country: US (occurrence: US)
  Receive Date: 20180124
  Receipt Date: 20180124
  Transmission Date: 20180509
  Serious: No
  Sender: FDA-Public Use
  Company Number: None

PATIENT
  Age: 68 Year
  Sex: Male
  Weight: 92.7 kg

DRUGS (16)
  1. DOXYCYCLINE HYCL [Concomitant]
  2. OLMESARTAN/HCTZ [Concomitant]
     Active Substance: HYDROCHLOROTHIAZIDE\OLMESARTAN MEDOXOMIL
  3. NAPROXEN. [Concomitant]
     Active Substance: NAPROXEN
  4. CPAP MACHINE [Concomitant]
  5. FISH OIL [Concomitant]
     Active Substance: FISH OIL
  6. DICYCLOMINE HCY [Concomitant]
  7. ATORVASTATING [Concomitant]
  8. FENOFIBRATE. [Concomitant]
     Active Substance: FENOFIBRATE
  9. COMBIGAN [Concomitant]
     Active Substance: BRIMONIDINE TARTRATE\TIMOLOL MALEATE
  10. MULTI-VITAMIN [Concomitant]
     Active Substance: .ALPHA.-TOCOPHEROL ACETATE, DL-\ASCORBIC ACID\CYANOCOBALAMIN\FLUORIDE ION\FOLIC ACID\NIACIN\PYRIDOXINE\RIBOFLAVIN\THIAMINE\VITAMIN A\VITAMIN D
  11. BRILINTA [Suspect]
     Active Substance: TICAGRELOR
     Indication: CORONARY ARTERIAL STENT INSERTION
     Dosage: ?          QUANTITY:1 TABLET(S);?
     Route: 048
     Dates: start: 20180108, end: 20180122
  12. NIFEDIPINE. [Concomitant]
     Active Substance: NIFEDIPINE
  13. BABY ASPIRIN [Concomitant]
     Active Substance: ASPIRIN
  14. OMEPRAZOLE. [Concomitant]
     Active Substance: OMEPRAZOLE
  15. CARVEDILOL. [Concomitant]
     Active Substance: CARVEDILOL
  16. HYDRALAZINE [Concomitant]
     Active Substance: HYDRALAZINE HYDROCHLORIDE

REACTIONS (6)
  - Pallor [None]
  - Pulmonary oedema [None]
  - Middle insomnia [None]
  - Dyspnoea [None]
  - Fatigue [None]
  - Feeling cold [None]

NARRATIVE: CASE EVENT DATE: 20180108
